FAERS Safety Report 7826776-9 (Version None)
Quarter: 2011Q4

REPORT INFORMATION
  Report Type: 
  Country: None (occurrence: None)
  Receive Date: 20111020
  Receipt Date: 20111007
  Transmission Date: 20120403
  Serious: Yes (Other)
  Sender: FDA-Public Use
  Company Number: US-BAYER-2011-052570

PATIENT
  Age: 44 Year
  Sex: Female
  Weight: 53.515 kg

DRUGS (5)
  1. YAZ [Suspect]
     Indication: AMENORRHOEA
     Dosage: UNK
     Dates: start: 20060801, end: 20090601
  2. ALLERGY SHOTS [Concomitant]
     Indication: HYPERSENSITIVITY
     Dosage: UNK
     Dates: start: 20040101, end: 20100101
  3. ALLERGY SHOTS [Concomitant]
     Indication: ASTHMA
  4. ALLERGY SHOTS [Concomitant]
     Indication: SINUS DISORDER
  5. YASMIN [Suspect]
     Indication: AMENORRHOEA
     Dosage: UNK
     Dates: start: 20061001, end: 20070301

REACTIONS (7)
  - ANHEDONIA [None]
  - PAIN IN EXTREMITY [None]
  - DEEP VEIN THROMBOSIS [None]
  - ANXIETY [None]
  - FEAR [None]
  - MENTAL DISORDER [None]
  - INJURY [None]
